FAERS Safety Report 4625130-0 (Version None)
Quarter: 2005Q2

REPORT INFORMATION
  Report Type: 
  Country: None (occurrence: None)
  Receive Date: 20050401
  Receipt Date: 20050324
  Transmission Date: 20051028
  Serious: Yes (Other)
  Sender: FDA-Public Use
  Company Number: US-GLAXOSMITHKLINE-A0551182A

PATIENT
  Age: 59 Year
  Sex: Female

DRUGS (2)
  1. AQUAFRESH EXTREME CLEAN WHITENING TOOTHPASTE [Suspect]
     Indication: INTENTIONAL MISUSE
     Route: 061
     Dates: start: 20040301
  2. AQUAFRESH EXTREME CLEAN WHITENING TOOTHPASTE [Suspect]
     Indication: OFF LABEL USE
     Route: 061
     Dates: start: 20040301

REACTIONS (9)
  - ABDOMINAL PAIN [None]
  - ASTHENIA [None]
  - BLINDNESS TRANSIENT [None]
  - DIZZINESS [None]
  - FALL [None]
  - HEADACHE [None]
  - INTENTIONAL MISUSE [None]
  - OFF LABEL USE [None]
  - THERAPEUTIC RESPONSE UNEXPECTED [None]
